FAERS Safety Report 6486982-5 (Version None)
Quarter: 2009Q4

REPORT INFORMATION
  Report Type: 
  Country: None (occurrence: None)
  Receive Date: 20091210
  Receipt Date: 20091120
  Transmission Date: 20100525
  Serious: No
  Sender: FDA-Public Use
  Company Number: B0606866A

PATIENT
  Age: 33 Year
  Sex: Female

DRUGS (1)
  1. RELENZA [Suspect]
     Indication: PROPHYLAXIS
     Dosage: 1UNIT TWICE PER DAY
     Route: 055
     Dates: start: 20091117

REACTIONS (3)
  - DRUG EXPOSURE DURING PREGNANCY [None]
  - INCORRECT DOSE ADMINISTERED [None]
  - RESPIRATORY DISORDER [None]
